FAERS Safety Report 17288570 (Version 1)
Quarter: 2020Q1

REPORT INFORMATION
  Report Type: Report from Study
  Country: US (occurrence: US)
  Receive Date: 20200120
  Receipt Date: 20200120
  Transmission Date: 20200409
  Serious: Yes (Life-Threatening, Hospitalization)
  Sender: FDA-Public Use
  Company Number: US-GLAXOSMITHKLINE-2019-TSO01371-US

PATIENT
  Age: 67 Year
  Sex: Male
  Weight: 80.2 kg

DRUGS (12)
  1. NORCO [Concomitant]
     Active Substance: ACETAMINOPHEN\HYDROCODONE BITARTRATE
     Indication: PRODUCT USED FOR UNKNOWN INDICATION
     Dosage: 1 DOSE (S), 1 IN 4 HOUR
     Route: 065
     Dates: start: 20181109
  2. CORTEF [Concomitant]
     Active Substance: HYDROCORTISONE
     Indication: PRODUCT USED FOR UNKNOWN INDICATION
     Dosage: 2 TABLETS (20 MG) IN MORNING; 1 TABLET (10 MG) AFTER LUNCH DAILY
     Route: 065
     Dates: start: 20171024
  3. NIRAPARIB [Suspect]
     Active Substance: NIRAPARIB
     Indication: PROSTATE CANCER METASTATIC
     Dosage: 200 MG, QD
     Route: 048
     Dates: start: 20180222, end: 20190317
  4. ADVAIR HFA [Concomitant]
     Active Substance: FLUTICASONE PROPIONATE\SALMETEROL XINAFOATE
     Indication: PRODUCT USED FOR UNKNOWN INDICATION
     Dosage: 1 DOSE(S), IN 1 DAY
     Dates: start: 20170729
  5. DOCUSATE SODIUM. [Concomitant]
     Active Substance: DOCUSATE SODIUM
     Indication: PRODUCT USED FOR UNKNOWN INDICATION
     Dosage: 100 MG, 3 IN 1 DAY
     Route: 048
     Dates: start: 20181212
  6. ZYPREXA [Concomitant]
     Active Substance: OLANZAPINE
     Indication: APPETITE DISORDER
     Dosage: 5 MG, IN 1 HOUR OF SLEEP
     Route: 065
     Dates: start: 20181228
  7. XGEVA [Concomitant]
     Active Substance: DENOSUMAB
     Indication: PRODUCT USED FOR UNKNOWN INDICATION
     Dosage: 5 MG, IN 1 HOUR OF SLEEP
     Route: 058
     Dates: start: 20190222
  8. JNJ-63723283 [Suspect]
     Active Substance: CETRELIMAB
     Indication: PROSTATE CANCER METASTATIC
     Dosage: 480 MG A MONTH
     Dates: start: 20181114, end: 20190222
  9. VASOTEC [Concomitant]
     Active Substance: ENALAPRIL MALEATE
     Indication: PRODUCT USED FOR UNKNOWN INDICATION
     Dosage: 10 MG, IN 1 DAY
     Route: 065
     Dates: start: 2017
  10. LEUPROLIDE ACETATE. [Concomitant]
     Active Substance: LEUPROLIDE ACETATE
     Indication: PROSTATE CANCER
     Dosage: 45 MG, 1 IN 6 MONTH
     Dates: start: 2015
  11. INCRUSE ELLIPTA [Concomitant]
     Active Substance: UMECLIDINIUM BROMIDE
     Indication: PRODUCT USED FOR UNKNOWN INDICATION
     Dosage: 1 DOSE(S), IN 1 DAY
     Dates: start: 20170718
  12. MIRALAX [Concomitant]
     Active Substance: POLYETHYLENE GLYCOL 3350
     Indication: PRODUCT USED FOR UNKNOWN INDICATION
     Dosage: , 1 IN 1 AS NECESSARY
     Route: 065
     Dates: start: 20180824

REACTIONS (2)
  - Platelet count decreased [Recovered/Resolved]
  - Anaemia [Recovered/Resolved]

NARRATIVE: CASE EVENT DATE: 20190317
